FAERS Safety Report 4930020-X (Version None)
Quarter: 2006Q1

REPORT INFORMATION
  Report Type: 
  Country: None (occurrence: None)
  Receive Date: 20060302
  Receipt Date: 20060223
  Transmission Date: 20060701
  Serious: Yes (Death, Hospitalization)
  Sender: FDA-Public Use
  Company Number: FR-JNJFOC-20060205752

PATIENT
  Age: 51 Year
  Sex: Female

DRUGS (1)
  1. REMICADE [Suspect]
     Indication: RHEUMATOID ARTHRITIS
     Dosage: INITIATED 1.5 YEARS AGO.
     Route: 042

REACTIONS (4)
  - CARDIO-RESPIRATORY ARREST [None]
  - DEATH [None]
  - PULMONARY EMBOLISM [None]
  - SUDDEN DEATH [None]
